FAERS Safety Report 6403905-5 (Version None)
Quarter: 2009Q4

REPORT INFORMATION
  Report Type: 
  Country: None (occurrence: None)
  Receive Date: 20091015
  Receipt Date: 20091015
  Transmission Date: 20100525
  Serious: Yes (Hospitalization)
  Sender: FDA-Public Use
  Company Number: None

PATIENT
  Age: 30 Year
  Sex: Female
  Weight: 63.5036 kg

DRUGS (15)
  1. AUGMENTIN '875' [Suspect]
     Indication: PHARYNGITIS STREPTOCOCCAL
     Dosage: 1 PILL BID FOR 10 DAYS PO SUPPOSED TO BE FOR 10 DAYS
     Route: 048
     Dates: start: 20091007, end: 20091014
  2. PHENERGEN [Concomitant]
  3. MORPHINE [Concomitant]
  4. PREDNISONE TAB [Concomitant]
  5. REMICADE [Concomitant]
  6. CELEBREX [Concomitant]
  7. SALAGEN [Concomitant]
  8. COLCHICINE [Concomitant]
  9. LAMISIL [Concomitant]
  10. AMITIZA [Concomitant]
  11. SINGULAIR [Concomitant]
  12. SKELAXIN [Concomitant]
  13. PHENERGEN [Concomitant]
  14. KLONOPIN [Concomitant]
  15. INTRATHECAL LIORESAL/BACLOFEN PUMP [Concomitant]

REACTIONS (5)
  - ACCIDENTAL EXPOSURE [None]
  - DEHYDRATION [None]
  - DIZZINESS [None]
  - GASTROENTERITIS [None]
  - SYNCOPE [None]
